FAERS Safety Report 8063246-X (Version None)
Quarter: 2012Q1

REPORT INFORMATION
  Report Type: 
  Country: None (occurrence: None)
  Receive Date: 20120123
  Receipt Date: 20120118
  Transmission Date: 20120608
  Serious: Yes (Hospitalization, Other)
  Sender: FDA-Public Use
  Company Number: PHEH2012US001711

PATIENT
  Sex: Male

DRUGS (2)
  1. TEKTURNA [Suspect]
     Indication: HYPERTENSION
     Dosage: 150 UKN, UNK
     Dates: start: 20071129, end: 20111220
  2. ACE INHIBITOR NOS [Concomitant]
     Dosage: UNK UKN, UNK

REACTIONS (2)
  - FACIAL PARESIS [None]
  - CEREBROVASCULAR ACCIDENT [None]
